FAERS Safety Report 7588552-4 (Version None)
Quarter: 2011Q2

REPORT INFORMATION
  Report Type: 
  Country: None (occurrence: None)
  Receive Date: 20110603
  Receipt Date: 20110325
  Transmission Date: 20111010
  Serious: Yes (Other)
  Sender: FDA-Public Use
  Company Number: 2011SP013869

PATIENT
  Sex: Female

DRUGS (6)
  1. PARNATE [Concomitant]
  2. SAPHRIS [Suspect]
     Indication: BIPOLAR DISORDER
     Dosage: 10 MG;BID;SL
     Route: 060
     Dates: start: 20100101
  3. NEURONTIN [Concomitant]
  4. SYNTHROID [Concomitant]
  5. DEPAKOTE ER [Concomitant]
  6. BENZTROPINE MESYLATE [Concomitant]

REACTIONS (1)
  - DYSKINESIA [None]
